FAERS Safety Report 9813670 (Version 1)
Quarter: 2014Q1

REPORT INFORMATION
  Report Type: Spontaneous
  Country: US (occurrence: None)
  Receive Date: 20140109
  Receipt Date: 20140109
  Transmission Date: 20141002
  Serious: Yes (Hospitalization)
  Sender: FDA-Public Use
  Company Number: None

PATIENT
  Age: 95 Year
  Sex: Male
  Weight: 83.6 kg

DRUGS (2)
  1. BISACODYL [Suspect]
     Indication: CONSTIPATION
     Route: 054
     Dates: start: 20131022, end: 20131224
  2. DOCUSATE [Suspect]
     Indication: CONSTIPATION
     Route: 048
     Dates: start: 20130907, end: 20131224

REACTIONS (4)
  - Diarrhoea [None]
  - Asthenia [None]
  - Coccydynia [None]
  - Ulcer [None]
